FAERS Safety Report 25683048 (Version 1)
Quarter: 2025Q3

REPORT INFORMATION
  Report Type: Spontaneous
  Country: US (occurrence: US)
  Receive Date: 20250814
  Receipt Date: 20250814
  Transmission Date: 20251021
  Serious: No
  Sender: ORASIS PHARMACEUTICALS
  Company Number: US-ORASIS PHARMACEUTIALS-2025ORA00022

PATIENT
  Age: 46 Year
  Sex: Female

DRUGS (1)
  1. QLOSI [Suspect]
     Active Substance: PILOCARPINE HYDROCHLORIDE
     Indication: Presbyopia
     Route: 047

REACTIONS (5)
  - Visual impairment [Unknown]
  - Metamorphopsia [Unknown]
  - Facial pain [Unknown]
  - Therapeutic response shortened [Unknown]
  - Instillation site irritation [Unknown]
